FAERS Safety Report 14069421 (Version 2)
Quarter: 2017Q4

REPORT INFORMATION
  Report Type: Report from Study
  Country: US (occurrence: US)
  Receive Date: 20171010
  Receipt Date: 20171012
  Transmission Date: 20180321
  Serious: Yes (Hospitalization)
  Sender: FDA-Public Use
  Company Number: US-SA-2017SA193975

PATIENT
  Age: 71 Year
  Sex: Male

DRUGS (2)
  1. PRALUENT [Suspect]
     Active Substance: ALIROCUMAB
     Indication: BLOOD CHOLESTEROL
     Route: 058
     Dates: start: 20170901
  2. ALIROCUMAB PREFILLED PEN [Suspect]
     Active Substance: ALIROCUMAB
     Indication: BLOOD CHOLESTEROL
     Dates: start: 20170901

REACTIONS (14)
  - Neck injury [Unknown]
  - Muscle spasms [Not Recovered/Not Resolved]
  - Rhinorrhoea [Not Recovered/Not Resolved]
  - Arthralgia [Unknown]
  - Spinal column injury [Not Recovered/Not Resolved]
  - Aortic disorder [Unknown]
  - Diarrhoea [Not Recovered/Not Resolved]
  - Condition aggravated [Unknown]
  - Myalgia [Not Recovered/Not Resolved]
  - Neck pain [Unknown]
  - Chest pain [Unknown]
  - Pollakiuria [Not Recovered/Not Resolved]
  - Musculoskeletal pain [Unknown]
  - Medial tibial stress syndrome [Unknown]

NARRATIVE: CASE EVENT DATE: 2017
